FAERS Safety Report 6441828-6 (Version None)
Quarter: 2009Q4

REPORT INFORMATION
  Report Type: 
  Country: None (occurrence: None)
  Receive Date: 20091116
  Receipt Date: 20091111
  Transmission Date: 20100525
  Serious: Yes (Other)
  Sender: FDA-Public Use
  Company Number: US-GILEAD-2009-0025368

PATIENT
  Sex: Male
  Weight: 59.02 kg

DRUGS (5)
  1. LETAIRIS [Suspect]
     Indication: PULMONARY ARTERIAL HYPERTENSION
     Route: 048
     Dates: start: 20090318
  2. WARFARIN SODIUM [Concomitant]
  3. FLOMAX [Concomitant]
  4. ACTOS [Concomitant]
  5. RANEXA [Concomitant]

REACTIONS (1)
  - PROSTATE CANCER [None]
